FAERS Safety Report 10896679 (Version 1)
Quarter: 2015Q1

REPORT INFORMATION
  Report Type: Spontaneous
  Country: US (occurrence: None)
  Receive Date: 20150302
  Receipt Date: 20150302
  Transmission Date: 20150721
  Serious: No
  Sender: FDA-Public Use
  Company Number: None

PATIENT
  Age: 39 Year
  Sex: Female

DRUGS (13)
  1. CYCLOBENZAPRINE [Concomitant]
     Active Substance: CYCLOBENZAPRINE
  2. ETODOLAC. [Concomitant]
     Active Substance: ETODOLAC
  3. AMPYRA [Concomitant]
     Active Substance: DALFAMPRIDINE
  4. MODAFINIL. [Concomitant]
     Active Substance: MODAFINIL
  5. NABUMETONE. [Concomitant]
     Active Substance: NABUMETONE
  6. LEVOTHYROXINE [Concomitant]
     Active Substance: LEVOTHYROXINE
  7. CEFUROXIME. [Concomitant]
     Active Substance: CEFUROXIME
  8. CITALOPRAM [Concomitant]
     Active Substance: CITALOPRAM HYDROBROMIDE
  9. EXTAVIA [Concomitant]
     Active Substance: INTERFERON BETA-1B
  10. OMEPRAZOLE. [Concomitant]
     Active Substance: OMEPRAZOLE
  11. CEPHALEXIN. [Concomitant]
     Active Substance: CEPHALEXIN
  12. AMPYRA [Suspect]
     Active Substance: DALFAMPRIDINE
     Indication: MULTIPLE SCLEROSIS
     Route: 048
     Dates: start: 201007, end: 201402
  13. CIPRO [Concomitant]
     Active Substance: CIPROFLOXACIN HYDROCHLORIDE

REACTIONS (2)
  - Urinary tract infection [None]
  - Drug ineffective [None]

NARRATIVE: CASE EVENT DATE: 20140624
